FAERS Safety Report 21856524 (Version 1)
Quarter: 2023Q1

REPORT INFORMATION
  Report Type: Spontaneous
  Country: US (occurrence: US)
  Receive Date: 20230112
  Receipt Date: 20230112
  Transmission Date: 20230417
  Serious: No
  Sender: FDA-Public Use
  Company Number: US-BIOGEN-2023BI01180963

PATIENT
  Age: 23 Year
  Sex: Female

DRUGS (2)
  1. SPINRAZA [Suspect]
     Active Substance: NUSINERSEN
     Indication: Spinal muscular atrophy
     Route: 050
  2. PROGESTERONE [Suspect]
     Active Substance: PROGESTERONE
     Indication: Product used for unknown indication
     Route: 050

REACTIONS (7)
  - Fatigue [Unknown]
  - Amenorrhoea [Unknown]
  - Malnutrition [Unknown]
  - Asthenia [Unknown]
  - Sluggishness [Unknown]
  - Hypoglycaemia [Unknown]
  - Fatigue [Unknown]
